FAERS Safety Report 4754264-5 (Version None)
Quarter: 2005Q3

REPORT INFORMATION
  Report Type: 
  Country: None (occurrence: None)
  Receive Date: 20050817
  Receipt Date: 20050803
  Transmission Date: 20060218
  Serious: Yes (Hospitalization)
  Sender: FDA-Public Use
  Company Number: SAGL-ZLB/05/70/GFR

PATIENT
  Age: 67 Year
  Sex: Female
  Weight: 49 kg

DRUGS (2)
  1. SANDOGLOBULIN [Suspect]
     Indication: SECONDARY IMMUNODEFICIENCY
     Dosage: 10 G, ONCE, I.V.
     Route: 042
     Dates: start: 20050720, end: 20050720
  2. RED BLOOD CELLS [Concomitant]

REACTIONS (3)
  - BLOOD PRESSURE INCREASED [None]
  - CHILLS [None]
  - HEART RATE INCREASED [None]
